FAERS Safety Report 8617830-2 (Version None)
Quarter: 2012Q3

REPORT INFORMATION
  Report Type: 
  Country: None (occurrence: None)
  Receive Date: 20120824
  Receipt Date: 20120214
  Transmission Date: 20120928
  Serious: No
  Sender: FDA-Public Use
  Company Number: US-ASTRAZENECA-2012SE10344

PATIENT
  Age: 64 Year
  Sex: Female

DRUGS (4)
  1. NOVOLOG [Concomitant]
  2. NEXIUM [Concomitant]
     Route: 048
  3. SYMBICORT [Suspect]
     Route: 055
  4. CRESTOR [Concomitant]
     Route: 048

REACTIONS (2)
  - OFF LABEL USE [None]
  - DYSPNOEA [None]
